FAERS Safety Report 9313632 (Version 1)
Quarter: 2013Q2

REPORT INFORMATION
  Report Type: Spontaneous
  Country: CN (occurrence: CN)
  Receive Date: 20130528
  Receipt Date: 20130528
  Transmission Date: 20140414
  Serious: Yes (Other)
  Sender: FDA-Public Use
  Company Number: CN-ELI_LILLY_AND_COMPANY-CN201210005832

PATIENT
  Age: 2 Year
  Sex: Female
  Weight: 13 kg

DRUGS (2)
  1. CECLOR [Suspect]
     Indication: UPPER RESPIRATORY TRACT INFECTION
     Dosage: 62.5 MG, TID
     Route: 048
     Dates: start: 20100214
  2. SMECTITE [Concomitant]

REACTIONS (9)
  - Upper respiratory tract inflammation [Recovering/Resolving]
  - Bronchitis [Recovering/Resolving]
  - Febrile convulsion [Recovering/Resolving]
  - Asphyxia [Recovering/Resolving]
  - Eye colour change [Recovering/Resolving]
  - Peripheral coldness [Recovering/Resolving]
  - Musculoskeletal stiffness [Recovering/Resolving]
  - Pyrexia [Recovering/Resolving]
  - Vomiting [Recovering/Resolving]
